FAERS Safety Report 6840325-3 (Version None)
Quarter: 2010Q2

REPORT INFORMATION
  Report Type: 
  Country: None (occurrence: None)
  Receive Date: 20100629
  Receipt Date: 20100415
  Transmission Date: 20101027
  Serious: Yes (Other)
  Sender: FDA-Public Use
  Company Number: US-WYE-H14645010

PATIENT
  Age: 72 Year
  Sex: Female
  Weight: 88.53 kg

DRUGS (5)
  1. PRISTIQ [Suspect]
     Indication: DEPRESSION
     Dosage: 50 MG 1X PER 1 DAY ; 50 MG 1X PER 1 DAY
     Dates: start: 20090101, end: 20091201
  2. PRISTIQ [Suspect]
     Indication: DEPRESSION
     Dosage: 50 MG 1X PER 1 DAY ; 50 MG 1X PER 1 DAY
     Dates: start: 20100412
  3. BUPROPION HYDROCHLORIDE (BUPROPION HYDROCHLORIDE) [Concomitant]
  4. NEFAZODONE HCL [Concomitant]
  5. TRIAMTERENE AND HYDROCHLOROTHIAZID ^HARRIS^ (HYDROCHLOROTHIAZIDE/TRIAM [Concomitant]

REACTIONS (2)
  - CONDITION AGGRAVATED [None]
  - HYPERTENSION [None]
